FAERS Safety Report 13153160 (Version 2)
Quarter: 2017Q1

REPORT INFORMATION
  Report Type: Report from Study
  Country: None (occurrence: US)
  Receive Date: 20170126
  Receipt Date: 20170303
  Transmission Date: 20170428
  Serious: Yes (Other)
  Sender: FDA-Public Use
  Company Number: US-ABBVIE-17K-163-1843538-00

PATIENT
  Age: 19 Year
  Sex: Female

DRUGS (1)
  1. HUMIRA [Suspect]
     Active Substance: ADALIMUMAB
     Indication: HIDRADENITIS
     Route: 058

REACTIONS (5)
  - Nasopharyngitis [Not Recovered/Not Resolved]
  - Hernia [Unknown]
  - Drug dose omission [Recovered/Resolved]
  - Drug ineffective [Recovered/Resolved]
  - Hidradenitis [Recovered/Resolved]

NARRATIVE: CASE EVENT DATE: 2016
